FAERS Safety Report 5027752-4 (Version None)
Quarter: 2006Q2

REPORT INFORMATION
  Report Type: 
  Country: None (occurrence: None)
  Receive Date: 20060428
  Receipt Date: 20060207
  Transmission Date: 20061013
  Serious: Yes (Hospitalization)
  Sender: FDA-Public Use
  Company Number: COT_0397_2006

PATIENT
  Age: 66 Year
  Sex: Female
  Weight: 106.1 kg

DRUGS (17)
  1. VENTAVIS [Suspect]
     Indication: PULMONARY HYPERTENSION
     Dosage: 5 MCG 6XD IH
     Route: 055
     Dates: start: 20050804, end: 20060622
  2. WARFARIN SODIUM [Concomitant]
  3. AMBIEN [Concomitant]
  4. ATIVAN [Concomitant]
  5. ADVAIR DISKUS 100/50 [Concomitant]
  6. NEXIUM [Concomitant]
  7. CENTRUM [Concomitant]
  8. FIBERCON [Concomitant]
  9. LIPITOR [Concomitant]
  10. POTASSIUM [Concomitant]
  11. LASIX [Concomitant]
  12. REQUIP [Concomitant]
  13. SILDENAFIL [Concomitant]
  14. PROCARDIA [Concomitant]
  15. GLUCOPHAGE [Concomitant]
  16. NITROLINGUAL [Concomitant]
  17. TRACLEER [Concomitant]

REACTIONS (1)
  - PNEUMONIA [None]
